FAERS Safety Report 25151683 (Version 1)
Quarter: 2025Q2

REPORT INFORMATION
  Report Type: Spontaneous
  Country: US (occurrence: US)
  Receive Date: 20250402
  Receipt Date: 20250402
  Transmission Date: 20250716
  Serious: Yes (Hospitalization)
  Sender: PARI RESPIRATORY EQUIPMENT
  Company Number: US-PARI RESPIRATORY EQUIPMENT, INC.-2025PAR00026

PATIENT
  Sex: Male

DRUGS (5)
  1. KITABIS PAK [Suspect]
     Active Substance: TOBRAMYCIN
     Indication: Illness
     Dosage: 5 ML, 2X/DAY VIA NEBULIZER FOR 28 DAYS ON AND 28 DAYS OFF
  2. GLYCOPYRROLATE [Concomitant]
     Active Substance: GLYCOPYRROLATE
  3. FAMOTIDINE [Concomitant]
     Active Substance: FAMOTIDINE
  4. FLOVENT HFA [Concomitant]
     Active Substance: FLUTICASONE PROPIONATE
  5. KATERZIA [Concomitant]
     Active Substance: AMLODIPINE BENZOATE

REACTIONS (2)
  - Norovirus infection [Recovered/Resolved]
  - Product dose omission issue [Unknown]
